FAERS Safety Report 9720891 (Version 1)
Quarter: 2013Q4

REPORT INFORMATION
  Report Type: Report from Study
  Country: US (occurrence: US)
  Receive Date: 20131129
  Receipt Date: 20131129
  Transmission Date: 20140711
  Serious: Yes (Other)
  Sender: FDA-Public Use
  Company Number: US-JNJFOC-20131115091

PATIENT
  Sex: Female
  Weight: 124.74 kg

DRUGS (10)
  1. REMICADE [Suspect]
     Indication: PSORIATIC ARTHROPATHY
     Dosage: STARTER DOSES
     Route: 042
     Dates: start: 20131008
  2. BIRTH CONTROL PILL [Concomitant]
     Indication: CONTRACEPTION
     Route: 065
  3. SYNTHROID [Concomitant]
     Indication: HYPOTHYROIDISM
     Route: 065
  4. SYNTHROID [Concomitant]
     Indication: HYPOTHYROIDISM
     Route: 065
  5. CALCITRIOL [Concomitant]
     Indication: HYPOTHYROIDISM
     Route: 065
  6. NORVASC [Concomitant]
     Indication: HYPERTENSION
     Route: 065
  7. COZAAR [Concomitant]
     Indication: HYPERTENSION
     Route: 065
  8. NEURONTIN [Concomitant]
     Indication: ARTHRITIS
     Dosage: TWICE AT NIGHT
     Route: 065
  9. LEXAPRO [Concomitant]
     Indication: DEPRESSION
     Route: 065
  10. METFORMIN [Concomitant]
     Indication: POLYCYSTIC OVARIES
     Route: 065

REACTIONS (9)
  - Palpitations [Unknown]
  - Blood pressure increased [Unknown]
  - Headache [Unknown]
  - Abdominal pain [Not Recovered/Not Resolved]
  - Nausea [Unknown]
  - Vomiting [Unknown]
  - Dyspnoea [Not Recovered/Not Resolved]
  - Neck pain [Not Recovered/Not Resolved]
  - Musculoskeletal pain [Not Recovered/Not Resolved]
